FAERS Safety Report 9668140 (Version 1)
Quarter: 2013Q4

REPORT INFORMATION
  Report Type: Spontaneous
  Country: US (occurrence: None)
  Receive Date: 20131101
  Receipt Date: 20131101
  Transmission Date: 20140711
  Serious: Yes (Other)
  Sender: FDA-Public Use
  Company Number: PHEB20130015

PATIENT
  Age: 58 Year
  Sex: Female

DRUGS (2)
  1. PHENOBARBITAL [Suspect]
     Indication: TEMPORAL LOBE EPILEPSY
     Dosage: 5 IN 1 D
     Route: 048
     Dates: start: 2013
  2. PHENOBARBITAL [Suspect]

REACTIONS (3)
  - Drug effect decreased [None]
  - Musculoskeletal disorder [None]
  - Anticonvulsant drug level above therapeutic [None]
